FAERS Safety Report 5496850-3 (Version None)
Quarter: 2007Q4

REPORT INFORMATION
  Report Type: 
  Country: None (occurrence: None)
  Receive Date: 20071025
  Receipt Date: 20070914
  Transmission Date: 20080405
  Serious: No
  Sender: FDA-Public Use
  Company Number: A0676658A

PATIENT
  Sex: Female

DRUGS (9)
  1. ADVAIR DISKUS 100/50 [Suspect]
     Indication: CHRONIC OBSTRUCTIVE PULMONARY DISEASE
     Dosage: 1PUFF TWICE PER DAY
     Route: 055
     Dates: start: 20050801
  2. ALBUTEROL [Suspect]
  3. ALBUTEROL [Suspect]
  4. ELAVIL [Concomitant]
  5. POTASSIUM CHLORIDE [Concomitant]
  6. OCUVITE [Concomitant]
  7. GABAPENTIN [Concomitant]
  8. HIGH BLOOD PRESSURE PILL [Concomitant]
  9. SINGULAIR [Concomitant]
     Route: 048

REACTIONS (2)
  - CHEST DISCOMFORT [None]
  - OVERDOSE [None]
